FAERS Safety Report 23554626 (Version 1)
Quarter: 2024Q1

REPORT INFORMATION
  Report Type: Spontaneous
  Country: US (occurrence: US)
  Receive Date: 20240222
  Receipt Date: 20240222
  Transmission Date: 20240410
  Serious: No
  Sender: FDA-Public Use
  Company Number: US-Sprout Pharmaceuticals, Inc.-2024SP000059

PATIENT
  Age: 70 Year
  Sex: Female
  Weight: 74.91 kg

DRUGS (2)
  1. ADDYI [Suspect]
     Active Substance: FLIBANSERIN
     Indication: Libido decreased
     Dosage: RX # 9456742
     Route: 048
     Dates: start: 202401, end: 202401
  2. ADDYI [Suspect]
     Active Substance: FLIBANSERIN
     Indication: Libido decreased

REACTIONS (5)
  - Dizziness [Unknown]
  - Disorientation [Recovered/Resolved]
  - Feeling abnormal [Recovered/Resolved]
  - Intentional dose omission [Unknown]
  - Lethargy [Recovered/Resolved]

NARRATIVE: CASE EVENT DATE: 20240101
